FAERS Safety Report 7754117-4 (Version None)
Quarter: 2011Q3

REPORT INFORMATION
  Report Type: 
  Country: None (occurrence: None)
  Receive Date: 20110915
  Receipt Date: 20110906
  Transmission Date: 20111222
  Serious: Yes (Other)
  Sender: FDA-Public Use
  Company Number: US-BAYER-2011-082549

PATIENT
  Sex: Female

DRUGS (1)
  1. MIRENA [Suspect]
     Dosage: 20 MCG/24HR, CONT
     Route: 015
     Dates: start: 20110801, end: 20110101

REACTIONS (5)
  - ABDOMINAL PAIN [None]
  - VAGINAL HAEMORRHAGE [None]
  - PYREXIA [None]
  - NAUSEA [None]
  - DEPRESSED MOOD [None]
